FAERS Safety Report 8909749 (Version 2)
Quarter: 2014Q2

REPORT INFORMATION
  Report Type: Spontaneous
  Country: FR (occurrence: FR)
  Receive Date: 20121115
  Receipt Date: 20140613
  Transmission Date: 20141212
  Serious: Yes (Hospitalization, Other)
  Sender: FDA-Public Use
  Company Number: FR-VERTEX PHARMACEUTICAL INC.-2012-024506

PATIENT
  Age: 69 Year
  Sex: Female
  Weight: 52 kg

DRUGS (6)
  1. INCIVO [Suspect]
     Indication: HEPATITIS C
     Dosage: DOSAGE FORM: TABLET
     Route: 048
     Dates: start: 20120105, end: 20120327
  2. PEGASYS [Concomitant]
     Indication: HEPATITIS C
     Dosage: 180 ?G, QD
     Dates: start: 20120105
  3. COPEGUS [Concomitant]
     Indication: HEPATITIS C
     Dosage: 600 MG, QD
     Dates: start: 20120105
  4. NEORECORMON [Concomitant]
     Indication: ANAEMIA
     Dosage: 30000 IU, UNK
     Dates: start: 20120301
  5. GAVISCON (ANTACID) [Concomitant]
     Indication: GASTROOESOPHAGEAL REFLUX DISEASE
     Dosage: UNK
  6. GAVISCON (ANTACID) [Concomitant]
     Dates: start: 20120917

REACTIONS (1)
  - Hyperkalaemia [Recovered/Resolved]
